FAERS Safety Report 14660847 (Version 1)
Quarter: 2018Q1

REPORT INFORMATION
  Report Type: Spontaneous
  Country: BG (occurrence: BG)
  Receive Date: 20180320
  Receipt Date: 20180320
  Transmission Date: 20180509
  Serious: Yes (Other)
  Sender: FDA-Public Use
  Company Number: BG-MYLANLABS-2018M1016636

PATIENT
  Age: 21 Year
  Sex: Female

DRUGS (2)
  1. METHYLPREDNISOLONE. [Concomitant]
     Active Substance: METHYLPREDNISOLONE
     Indication: PRODUCT USED FOR UNKNOWN INDICATION
     Dosage: 8 MG, UNK
     Route: 048
  2. TACROLIMUS. [Suspect]
     Active Substance: TACROLIMUS
     Indication: GLOMERULONEPHRITIS
     Dosage: UNK
     Route: 065

REACTIONS (8)
  - Proteinuria [Recovering/Resolving]
  - Anaemia [Recovering/Resolving]
  - Maternal exposure before pregnancy [Unknown]
  - Epistaxis [Recovering/Resolving]
  - Staphylococcal infection [Recovering/Resolving]
  - Antineutrophil cytoplasmic antibody increased [Recovering/Resolving]
  - Haematuria [Recovering/Resolving]
  - Off label use [Unknown]
